FAERS Safety Report 7332196-6 (Version None)
Quarter: 2011Q1

REPORT INFORMATION
  Report Type: 
  Country: None (occurrence: None)
  Receive Date: 20110223
  Receipt Date: 20110209
  Transmission Date: 20110831
  Serious: Yes (Other)
  Sender: FDA-Public Use
  Company Number: 2011SP006468

PATIENT
  Sex: Male

DRUGS (3)
  1. PEG-INTRON [Suspect]
     Indication: LYMPHOMA
     Dates: end: 20050101
  2. PEG-INTRON [Suspect]
     Indication: LYMPHOMA
     Dates: start: 20020101, end: 20030101
  3. PEG-INTRON [Suspect]
     Indication: LYMPHOMA
     Dates: end: 20070101

REACTIONS (6)
  - FATIGUE [None]
  - SINUSITIS [None]
  - DECREASED IMMUNE RESPONSIVENESS [None]
  - MUSCULAR WEAKNESS [None]
  - MYOPATHY [None]
  - RESPIRATORY DISTRESS [None]
